FAERS Safety Report 9676293 (Version 3)
Quarter: 2015Q1

REPORT INFORMATION
  Report Type: Spontaneous
  Country: FR (occurrence: FR)
  Receive Date: 20131107
  Receipt Date: 20150319
  Transmission Date: 20150721
  Serious: Yes (Other)
  Sender: FDA-Public Use
  Company Number: FR-AMGEN-FRASP2013009447

PATIENT
  Age: 41 Year
  Sex: Female

DRUGS (9)
  1. CACIT                              /00944201/ [Concomitant]
     Dosage: 1000 UNK, UNK
  2. KAYEXALATE [Concomitant]
     Active Substance: SODIUM POLYSTYRENE SULFONATE
     Dosage: 1 MEASURED SPOONFUL PER WEEK
  3. BICARBONATE [Concomitant]
     Active Substance: BICARBONATE ION
     Dosage: 2G, UNK
  4. RENVELA [Concomitant]
     Active Substance: SEVELAMER CARBONATE
     Dosage: 800 UNK, 800 X 4
  5. LASILIX                            /00032601/ [Concomitant]
     Active Substance: FUROSEMIDE
     Dosage: 125 MG, UNK
  6. UVEDOSE [Concomitant]
     Active Substance: CHOLECALCIFEROL
     Dosage: UNK UNK, QMO, 100000 (1 PER MONTH)
  7. EMLA [Concomitant]
     Active Substance: LIDOCAINE\PRILOCAINE
     Dosage: UNK UNK, 3 PER WEEK
  8. MIMPARA [Suspect]
     Active Substance: CINACALCET HYDROCHLORIDE
     Indication: PRODUCT USED FOR UNKNOWN INDICATION
     Dosage: UNK
     Route: 065
     Dates: start: 20121019, end: 20121206
  9. INEXIUM                            /01479302/ [Concomitant]
     Active Substance: ESOMEPRAZOLE MAGNESIUM
     Dosage: 40 UNK, UNK

REACTIONS (3)
  - Sepsis [Unknown]
  - Polyhydramnios [Unknown]
  - Caesarean section [Unknown]
